FAERS Safety Report 13180809 (Version 1)
Quarter: 2017Q1

REPORT INFORMATION
  Report Type: Spontaneous
  Country: US (occurrence: US)
  Receive Date: 20170202
  Receipt Date: 20170202
  Transmission Date: 20170428
  Serious: No
  Sender: FDA-Public Use
  Company Number: US-SMITH AND NEPHEW, INC-2016SMT00080

PATIENT
  Sex: Male
  Weight: 87.75 kg

DRUGS (4)
  1. UNSPECIFIED MEDICATION(S) FOR HIGH BLOOD CHOLESTEROL [Concomitant]
  2. REGRANEX [Suspect]
     Active Substance: BECAPLERMIN
     Indication: WOUND
     Dosage: UNK, 1X/DAY
     Route: 061
     Dates: start: 20160106
  3. UNSPECIFIED MEDICATION(S) FOR ATRIAL FIBRILLATION [Concomitant]
  4. UNSPECIFIED MEDICATION(S) FOR HIGH BLOOD PRESSURE [Concomitant]

REACTIONS (3)
  - Off label use [Unknown]
  - Application site irritation [Recovering/Resolving]
  - Application site pain [Recovering/Resolving]
